FAERS Safety Report 14367457 (Version 1)
Quarter: 2018Q1

REPORT INFORMATION
  Report Type: Spontaneous
  Country: US (occurrence: US)
  Receive Date: 20180109
  Receipt Date: 20180109
  Transmission Date: 20180509
  Serious: No
  Sender: FDA-Public Use
  Company Number: US-BAYER-2018-004674

PATIENT
  Age: 69 Year
  Sex: Female
  Weight: 76 kg

DRUGS (1)
  1. MIRALAX [Suspect]
     Active Substance: POLYETHYLENE GLYCOL 3350
     Indication: COLONOSCOPY
     Dosage: UNK
     Route: 065

REACTIONS (4)
  - Product taste abnormal [Unknown]
  - Product use in unapproved indication [Unknown]
  - Poor quality drug administered [Unknown]
  - Off label use [Unknown]

NARRATIVE: CASE EVENT DATE: 1969
